FAERS Safety Report 8956538 (Version 1)
Quarter: 2012Q4

REPORT INFORMATION
  Report Type: Report from Study
  Country: CA (occurrence: CA)
  Receive Date: 20121210
  Receipt Date: 20121210
  Transmission Date: 20130627
  Serious: Yes (Hospitalization)
  Sender: FDA-Public Use
  Company Number: CA-JNJFOC-20121114500

PATIENT
  Sex: Male
  Weight: 101.8 kg

DRUGS (3)
  1. REMICADE [Suspect]
     Indication: CROHN^S DISEASE
     Route: 042
     Dates: start: 20100301
  2. IMURAN [Concomitant]
     Route: 048
  3. ASA [Concomitant]
     Route: 065

REACTIONS (2)
  - Intestinal obstruction [Recovered/Resolved]
  - Gastrointestinal injury [Unknown]
